FAERS Safety Report 22126160 (Version 2)
Quarter: 2023Q1

REPORT INFORMATION
  Report Type: Spontaneous
  Country: US (occurrence: US)
  Receive Date: 20230322
  Receipt Date: 20230323
  Transmission Date: 20230418
  Serious: No
  Sender: FDA-Public Use
  Company Number: US-ALLERGAN-2234605US

PATIENT
  Sex: Male

DRUGS (9)
  1. ALPHAGAN P [Suspect]
     Active Substance: BRIMONIDINE TARTRATE
     Indication: Open angle glaucoma
     Dosage: 2 GTT, BID
     Route: 047
     Dates: start: 2013
  2. LUMIGAN [Suspect]
     Active Substance: BIMATOPROST
     Indication: Open angle glaucoma
     Dosage: 2 GTT, QPM
     Route: 047
     Dates: start: 2013
  3. DORZOLAMIDE [Suspect]
     Active Substance: DORZOLAMIDE
     Indication: Open angle glaucoma
     Dosage: UNK, BID
     Dates: start: 2013
  4. ADVAIR DISKUS [Concomitant]
     Active Substance: FLUTICASONE PROPIONATE\SALMETEROL XINAFOATE
     Indication: Product used for unknown indication
     Dosage: 250 - 50 MCG/DOSE, INHALATION
     Route: 055
     Dates: start: 20121010
  5. ALBUTEROL SULFATE [Concomitant]
     Active Substance: ALBUTEROL SULFATE
     Indication: Product used for unknown indication
     Dosage: 90 MCG/DOSE
     Route: 055
     Dates: start: 20121010
  6. ASPIRIN [Concomitant]
     Active Substance: ASPIRIN
     Indication: Product used for unknown indication
     Dosage: 325 MG
     Route: 048
     Dates: start: 20121010
  7. ENALAPRIL MALEATE [Concomitant]
     Active Substance: ENALAPRIL MALEATE
     Indication: Product used for unknown indication
     Dosage: 20 MG
     Route: 048
     Dates: start: 20121010
  8. HYDROCHLOROTHIAZIDE [Concomitant]
     Active Substance: HYDROCHLOROTHIAZIDE
     Indication: Product used for unknown indication
     Dosage: 25 MG
     Route: 048
     Dates: start: 20121010
  9. SIMVASTATIN [Concomitant]
     Active Substance: SIMVASTATIN
     Indication: Product used for unknown indication
     Dosage: 20 MG
     Route: 048
     Dates: start: 20121010

REACTIONS (2)
  - Therapy interrupted [Unknown]
  - Intraocular pressure increased [Unknown]

NARRATIVE: CASE EVENT DATE: 20220101
